FAERS Safety Report 7737557-9 (Version None)
Quarter: 2011Q3

REPORT INFORMATION
  Report Type: 
  Country: None (occurrence: None)
  Receive Date: 20110908
  Receipt Date: 20110906
  Transmission Date: 20111222
  Serious: Yes (Other)
  Sender: FDA-Public Use
  Company Number: US-PFIZER INC-2011150385

PATIENT
  Sex: Male
  Weight: 89.796 kg

DRUGS (2)
  1. CHANTIX [Suspect]
     Indication: SMOKING CESSATION THERAPY
     Dosage: 0.5 MG, 1X/DAY
     Route: 048
     Dates: start: 20080916, end: 20080101
  2. CHANTIX [Suspect]
     Indication: NICOTINE DEPENDENCE
     Dosage: UNK
     Route: 048
     Dates: start: 20080101, end: 20080101

REACTIONS (2)
  - FEELING ABNORMAL [None]
  - PERSONALITY CHANGE [None]
